FAERS Safety Report 6355339-X (Version None)
Quarter: 2009Q3

REPORT INFORMATION
  Report Type: 
  Country: None (occurrence: None)
  Receive Date: 20090914
  Receipt Date: 20090904
  Transmission Date: 20100115
  Serious: Yes (Other)
  Sender: FDA-Public Use
  Company Number: US-JNJFOC-20090902986

PATIENT
  Age: 21 Year
  Sex: Male

DRUGS (2)
  1. TYLENOL COLD HEAD CONGESTION DAYTIME CAPLET COOL BURST [Suspect]
     Route: 048
     Dates: start: 20090901, end: 20090902
  2. TYLENOL COLD HEAD CONGESTION DAYTIME CAPLET COOL BURST [Suspect]
     Indication: NASOPHARYNGITIS
     Route: 048
     Dates: start: 20090901, end: 20090902

REACTIONS (1)
  - MYOCARDIAL INFARCTION [None]
